FAERS Safety Report 8144766-6 (Version None)
Quarter: 2012Q1

REPORT INFORMATION
  Report Type: 
  Country: None (occurrence: None)
  Receive Date: 20120217
  Receipt Date: 20120206
  Transmission Date: 20120608
  Serious: Yes (Death)
  Sender: FDA-Public Use
  Company Number: US-ACTELION-A-US2012-60181

PATIENT

DRUGS (2)
  1. REMODULIN [Suspect]
     Dosage: 72 UG/KG, UNK
     Dates: start: 20070501, end: 20120122
  2. TRACLEER [Suspect]
     Indication: PULMONARY ARTERIAL HYPERTENSION
     Dosage: UNK
     Route: 048
     Dates: start: 20030924, end: 20120122

REACTIONS (2)
  - SUDDEN DEATH [None]
  - ARRHYTHMIA [None]
